FAERS Safety Report 6489722-9 (Version None)
Quarter: 2009Q4

REPORT INFORMATION
  Report Type: 
  Country: None (occurrence: None)
  Receive Date: 20091207
  Receipt Date: 20091123
  Transmission Date: 20100525
  Serious: Yes (Death, Hospitalization)
  Sender: FDA-Public Use
  Company Number: 2009AC000087

PATIENT
  Age: 36 Year
  Sex: Male

DRUGS (14)
  1. DIGOXIN [Suspect]
     Dosage: 0.25 MG;BID;PO
     Route: 048
  2. DILACOR XR [Concomitant]
  3. LODINE [Concomitant]
  4. DILTIAZEM [Concomitant]
  5. TENORMIN [Concomitant]
  6. ASPIRIN [Concomitant]
  7. PREVACID [Concomitant]
  8. ALLOPURINOL [Concomitant]
  9. CARTIA XT [Concomitant]
  10. ZOVIRAX [Concomitant]
  11. LOVASTATIN [Concomitant]
  12. PROTONIX [Concomitant]
  13. ASPIRIN [Concomitant]
  14. IBUPROFEN [Concomitant]

REACTIONS (33)
  - ANXIETY [None]
  - APPARENT DEATH [None]
  - ARTERIOSCLEROSIS [None]
  - ASTHENIA [None]
  - ATRIAL FIBRILLATION [None]
  - AUTOIMMUNE DISORDER [None]
  - BLOOD CHOLESTEROL INCREASED [None]
  - BLOOD GLUCOSE INCREASED [None]
  - CARDIAC ARREST [None]
  - CARDIOACTIVE DRUG LEVEL DECREASED [None]
  - CHEST PAIN [None]
  - DYSPEPSIA [None]
  - ECONOMIC PROBLEM [None]
  - EMOTIONAL DISTRESS [None]
  - FATIGUE [None]
  - FEELING COLD [None]
  - HYPERHIDROSIS [None]
  - HYPERTENSION [None]
  - HYPERURICAEMIA [None]
  - INTERVERTEBRAL DISC CALCIFICATION [None]
  - INTERVERTEBRAL DISC PROTRUSION [None]
  - MYOCARDIAL INFARCTION [None]
  - NIGHT SWEATS [None]
  - OBESITY [None]
  - OEDEMA [None]
  - PAIN [None]
  - PALPITATIONS [None]
  - PERIPHERAL COLDNESS [None]
  - PROTHROMBIN TIME PROLONGED [None]
  - SPINAL OSTEOARTHRITIS [None]
  - UNEVALUABLE EVENT [None]
  - VENTRICULAR ARRHYTHMIA [None]
  - VISUAL ACUITY REDUCED [None]
